FAERS Safety Report 7322763-8 (Version None)
Quarter: 2011Q1

REPORT INFORMATION
  Report Type: 
  Country: None (occurrence: None)
  Receive Date: 20110216
  Receipt Date: 20110201
  Transmission Date: 20110831
  Serious: Yes (Hospitalization)
  Sender: FDA-Public Use
  Company Number: 026675

PATIENT
  Sex: Female

DRUGS (1)
  1. NEUPRO [Suspect]
     Dosage: (2 MG QD TRANSDERMAL)
     Route: 062

REACTIONS (1)
  - DRUG INEFFECTIVE [None]
